FAERS Safety Report 7212117-7 (Version None)
Quarter: 2010Q4

REPORT INFORMATION
  Report Type: 
  Country: None (occurrence: None)
  Receive Date: 20101227
  Receipt Date: 20101214
  Transmission Date: 20110411
  Serious: Yes (Disabling)
  Sender: FDA-Public Use
  Company Number: GB-GDP-10409548

PATIENT
  Age: 48 Year
  Sex: Male
  Weight: 95.5 kg

DRUGS (4)
  1. DOXYCYCLINE [Suspect]
     Indication: PRODUCT USED FOR UNKNOWN INDICATION
     Dates: start: 20101201
  2. AMLODIPINE [Concomitant]
  3. BENDROFLUMETHIAZIDE [Concomitant]
  4. CANDESARTAN [Concomitant]

REACTIONS (3)
  - DEPERSONALISATION [None]
  - DEREALISATION [None]
  - DYSARTHRIA [None]
